FAERS Safety Report 7753882-X (Version None)
Quarter: 2011Q3

REPORT INFORMATION
  Report Type: 
  Country: None (occurrence: None)
  Receive Date: 20110913
  Receipt Date: 20110830
  Transmission Date: 20111222
  Serious: Yes (Death, Hospitalization, Disabling, Other)
  Sender: FDA-Public Use
  Company Number: 2011MA012735

PATIENT
  Age: 77 Year
  Sex: Male
  Weight: 79.3795 kg

DRUGS (13)
  1. LOMOTIL [Concomitant]
  2. POTASSIUM CHLORIDE [Concomitant]
  3. LONOX [Concomitant]
  4. VICODIN [Concomitant]
  5. FLAGYL [Concomitant]
  6. MORPHINE [Concomitant]
  7. DARVOCET-N 100 [Concomitant]
  8. LORTAB [Concomitant]
  9. DIAMOX SRC [Concomitant]
  10. HYDROCODONE BITARTRATE AND ACETAMINOPHEN [Concomitant]
  11. LASIX [Concomitant]
  12. DIGOXIN [Suspect]
     Indication: SUPRAVENTRICULAR TACHYCARDIA
     Dosage: 0.25 MG; QD; PO
     Route: 048
     Dates: start: 20070110, end: 20070127
  13. LOVENOX [Concomitant]

REACTIONS (36)
  - STRESS [None]
  - MULTIPLE INJURIES [None]
  - ARRHYTHMIA [None]
  - ARTERIOSCLEROSIS [None]
  - THORACIC VERTEBRAL FRACTURE [None]
  - LEFT VENTRICULAR DYSFUNCTION [None]
  - HAEMATOCRIT DECREASED [None]
  - HYPOXIA [None]
  - PULMONARY OEDEMA [None]
  - SUPRAVENTRICULAR TACHYCARDIA [None]
  - FALL [None]
  - ANXIETY [None]
  - PALPITATIONS [None]
  - ELECTROCARDIOGRAM T WAVE ABNORMAL [None]
  - HYPOKALAEMIA [None]
  - ECONOMIC PROBLEM [None]
  - MYOCARDIAL INFARCTION [None]
  - PROCEDURAL COMPLICATION [None]
  - CARDIAC DISORDER [None]
  - LOSS OF CONSCIOUSNESS [None]
  - GASTRIC OCCULT BLOOD POSITIVE [None]
  - ILEUS [None]
  - COMPRESSION FRACTURE [None]
  - OSTEOPOROTIC FRACTURE [None]
  - GASTRIC HAEMORRHAGE [None]
  - PAIN [None]
  - TRICUSPID VALVE INCOMPETENCE [None]
  - HAEMOGLOBIN DECREASED [None]
  - MITRAL VALVE INCOMPETENCE [None]
  - CLOSTRIDIUM DIFFICILE COLITIS [None]
  - FEELING ABNORMAL [None]
  - FRACTURE DISPLACEMENT [None]
  - QRS AXIS ABNORMAL [None]
  - BRAIN NATRIURETIC PEPTIDE INCREASED [None]
  - VENTRICULAR EXTRASYSTOLES [None]
  - ANAEMIA [None]
